FAERS Safety Report 10992362 (Version 2)
Quarter: 2015Q2

REPORT INFORMATION
  Report Type: Report from Study
  Country: DE (occurrence: DE)
  Receive Date: 20150406
  Receipt Date: 20150410
  Transmission Date: 20150821
  Serious: Yes (Other)
  Sender: FDA-Public Use
  Company Number: PHHY2014DE048071

PATIENT
  Sex: Female
  Weight: 59 kg

DRUGS (9)
  1. MUCOSOLVAN [Concomitant]
     Active Substance: AMBROXOL\CLENBUTEROL
     Indication: CHRONIC OBSTRUCTIVE PULMONARY DISEASE
     Dosage: 15 MG/2 ML, AS NEEDED
     Route: 055
  2. GLYCOPYRRONIUM BROMIDE [Suspect]
     Active Substance: GLYCOPYRRONIUM
     Indication: CHRONIC OBSTRUCTIVE PULMONARY DISEASE
     Dosage: 44 UG, QD (1 DF QD)
     Route: 055
  3. THEOPHYLLIN RETARD-RATIOPHARM [Concomitant]
     Indication: CHRONIC OBSTRUCTIVE PULMONARY DISEASE
     Dosage: 1 DF, BID
     Route: 065
  4. ASS AL [Concomitant]
     Indication: CORONARY ARTERY DISEASE
     Dosage: 100 OT, QD (0-1-0)
     Route: 065
     Dates: start: 20091230
  5. SPIRO COMP [Concomitant]
     Indication: CARDIAC FAILURE
     Dosage: 1X1
     Route: 065
  6. FORADIL [Suspect]
     Active Substance: FORMOTEROL FUMARATE
     Indication: CHRONIC OBSTRUCTIVE PULMONARY DISEASE
     Dosage: 1 DF, BID
     Route: 055
  7. NEBIVOLOL AL [Concomitant]
     Indication: HYPERTENSION
     Dosage: 5 MG, QD
     Route: 065
     Dates: start: 20100212
  8. PANTOPRAZOL AL [Concomitant]
     Indication: GASTRITIS
     Dosage: 1X1
     Route: 065
     Dates: start: 20120105
  9. SULTANOL [Concomitant]
     Active Substance: ALBUTEROL SULFATE
     Indication: CHRONIC OBSTRUCTIVE PULMONARY DISEASE
     Dosage: AS NEEDED
     Route: 065

REACTIONS (4)
  - Oesophageal carcinoma [Unknown]
  - Weight decreased [Not Recovered/Not Resolved]
  - Bronchial carcinoma [Unknown]
  - Condition aggravated [Not Recovered/Not Resolved]

NARRATIVE: CASE EVENT DATE: 20131218
